FAERS Safety Report 9684390 (Version 2)
Quarter: 2013Q4

REPORT INFORMATION
  Report Type: Spontaneous
  Country: US (occurrence: US)
  Receive Date: 20131112
  Receipt Date: 20131219
  Transmission Date: 20140711
  Serious: Yes (Death, Other)
  Sender: FDA-Public Use
  Company Number: US-TEVA-443711USA

PATIENT
  Age: 40 Year
  Sex: Male

DRUGS (1)
  1. ACTIQ [Suspect]

REACTIONS (2)
  - Unresponsive to stimuli [Unknown]
  - Death [Fatal]
